FAERS Safety Report 8104334-9 (Version None)
Quarter: 2012Q1

REPORT INFORMATION
  Report Type: 
  Country: None (occurrence: None)
  Receive Date: 20120130
  Receipt Date: 20120120
  Transmission Date: 20120608
  Serious: Yes (Hospitalization)
  Sender: FDA-Public Use
  Company Number: US-BAYER-2011-077230

PATIENT
  Age: 83 Year
  Sex: Female

DRUGS (11)
  1. SAXAGLIPTIN [Suspect]
     Indication: TYPE 2 DIABETES MELLITUS
  2. ANGIOTENSIN II ANTAGONISTS [Concomitant]
  3. BETA BLOCKING AGENTS [Concomitant]
  4. ASPIRIN [Suspect]
  5. DIURETICS [Concomitant]
  6. HMG COA REDUCTASE INHIBITORS [Concomitant]
  7. PLACEBO [Suspect]
     Indication: TYPE 2 DIABETES MELLITUS
  8. DP ANTOGONISTS [Concomitant]
  9. COUMADIN [Suspect]
  10. PLAVIX [Suspect]
  11. ANTITHROMBOTIC AGENTS [Concomitant]
     Route: 048

REACTIONS (3)
  - GASTROINTESTINAL TELANGIECTASIA [None]
  - RECTAL HAEMORRHAGE [None]
  - LOWER GASTROINTESTINAL HAEMORRHAGE [None]
